FAERS Safety Report 7197978-2 (Version None)
Quarter: 2010Q4

REPORT INFORMATION
  Report Type: 
  Country: None (occurrence: None)
  Receive Date: 20101227
  Receipt Date: 20101215
  Transmission Date: 20110411
  Serious: Yes (Life-Threatening, Hospitalization)
  Sender: FDA-Public Use
  Company Number: DE-SANOFI-AVENTIS-2010SA076908

PATIENT
  Age: 68 Year
  Sex: Female

DRUGS (2)
  1. LEFLUNOMIDE [Suspect]
     Route: 065
  2. KINERET [Suspect]
     Indication: RHEUMATOID ARTHRITIS
     Route: 058
     Dates: start: 20020701

REACTIONS (1)
  - CORONARY ARTERY DISEASE [None]
